FAERS Safety Report 5103080-3 (Version None)
Quarter: 2006Q3

REPORT INFORMATION
  Report Type: 
  Country: None (occurrence: None)
  Receive Date: 20060907
  Receipt Date: 20060823
  Transmission Date: 20061208
  Serious: Yes (Hospitalization, Other)
  Sender: FDA-Public Use
  Company Number: 2006AP000640

PATIENT
  Age: 50 Year
  Sex: Male

DRUGS (7)
  1. CARBAMAZEPINE [Suspect]
     Dosage: SEE IMAGE
  2. KALETRA [Suspect]
     Indication: HIV INFECTION
  3. NELFINAVIR                (NELFINAVIR) [Suspect]
     Indication: HIV INFECTION
     Dosage: 1250 MG;BID
     Dates: start: 20040101
  4. CITALOPRAM HYDROBROMIDE [Concomitant]
  5. DAPSONE [Concomitant]
  6. TOPIRAMATE [Concomitant]
  7. TENOFOVIR             (TENOFOVIR) [Concomitant]

REACTIONS (27)
  - ANTICONVULSANT TOXICITY [None]
  - BALANCE DISORDER [None]
  - BLOOD PRESSURE DECREASED [None]
  - BONE MARROW TOXICITY [None]
  - CYTOMEGALOVIRUS ANTIBODY POSITIVE [None]
  - DERMATITIS [None]
  - DRUG INTERACTION [None]
  - DRUG RESISTANCE [None]
  - DYSPHAGIA [None]
  - EPIDERMAL NECROSIS [None]
  - FATIGUE [None]
  - GAMMA-GLUTAMYLTRANSFERASE INCREASED [None]
  - HAEMOGLOBIN DECREASED [None]
  - HEART RATE DECREASED [None]
  - HYPOREFLEXIA [None]
  - IMMUNE RECONSTITUTION SYNDROME [None]
  - LYMPHOCYTE COUNT DECREASED [None]
  - MEAN CELL VOLUME INCREASED [None]
  - NEUTROPHIL COUNT DECREASED [None]
  - ORAL CANDIDIASIS [None]
  - PARAESTHESIA [None]
  - PLATELET COUNT DECREASED [None]
  - PRURITUS [None]
  - RASH MACULO-PAPULAR [None]
  - SOMNOLENCE [None]
  - TREATMENT NONCOMPLIANCE [None]
  - WHITE BLOOD CELL COUNT DECREASED [None]
